FAERS Safety Report 8973124 (Version 1)
Quarter: 2012Q4

REPORT INFORMATION
  Report Type: 
  Country: GB (occurrence: RU)
  Receive Date: 20121218
  Receipt Date: 20121218
  Transmission Date: 20130627
  Serious: Yes (Hospitalization)
  Sender: FDA-Public Use
  Company Number: RU-009507513-1212RUS005612

PATIENT
  Sex: Male

DRUGS (1)
  1. RALTEGRAVIR POTASSIUM [Suspect]
     Indication: HUMAN IMMUNODEFICIENCY VIRUS TRANSMISSION
     Dosage: 400 mg, bid
     Route: 048
     Dates: start: 20110202

REACTIONS (1)
  - Pneumonia [Unknown]
